FAERS Safety Report 10187203 (Version 1)
Quarter: 2014Q2

REPORT INFORMATION
  Report Type: Spontaneous
  Country: US (occurrence: None)
  Receive Date: 20140520
  Receipt Date: 20140520
  Transmission Date: 20141212
  Serious: Yes (Death)
  Sender: FDA-Public Use
  Company Number: 2014STPI000189

PATIENT
  Age: 75 Year
  Sex: Female
  Weight: 83.9 kg

DRUGS (1)
  1. MATULANE (PROCARBAZINE HYDROCHLORIDE) CAPSULE, 50MG [Suspect]
     Indication: HODGKIN^S DISEASE
     Route: 048
     Dates: start: 20140328

REACTIONS (1)
  - Death [None]
